FAERS Safety Report 11604208 (Version 1)
Quarter: 2015Q4

REPORT INFORMATION
  Report Type: Spontaneous
  Country: IT (occurrence: IT)
  Receive Date: 20151007
  Receipt Date: 20151007
  Transmission Date: 20160304
  Serious: Yes (Hospitalization)
  Sender: FDA-Public Use
  Company Number: IT-TEVA-598661ACC

PATIENT
  Age: 45 Year
  Sex: Female

DRUGS (10)
  1. LAMICTAL [Suspect]
     Active Substance: LAMOTRIGINE
     Indication: ALTERED STATE OF CONSCIOUSNESS
     Dosage: 25 MILLIGRAM DAILY; 25 MG DAILY
     Route: 048
     Dates: start: 20150612, end: 20150619
  2. BENERVA - 100 MG/1 ML SOLUZIONE INIETTABILE [Concomitant]
     Indication: PRODUCT USED FOR UNKNOWN INDICATION
  3. PEPTAZOL - 20 MG COMPRESSE GASTRORESISTENTI [Concomitant]
     Indication: PRODUCT USED FOR UNKNOWN INDICATION
     Dosage: 20 MG
  4. CIPROXIN - 200 MG/100 ML SOLUZIONE PER INFUSIONE [Concomitant]
     Indication: PRODUCT USED FOR UNKNOWN INDICATION
     Dosage: 2 DF
     Route: 042
  5. TAVOR [Concomitant]
     Active Substance: LORAZEPAM
     Indication: PRODUCT USED FOR UNKNOWN INDICATION
     Dosage: 7 MG
     Route: 048
  6. OLANZAPINE. [Suspect]
     Active Substance: OLANZAPINE
     Indication: ALTERED STATE OF CONSCIOUSNESS
     Dosage: 10 MILLIGRAM DAILY; 10 MG DAILY
     Route: 048
     Dates: start: 20150612, end: 20150619
  7. MEPRAL [Concomitant]
     Active Substance: OMEPRAZOLE SODIUM
     Indication: PRODUCT USED FOR UNKNOWN INDICATION
     Dosage: 40 MG
  8. MERREM - 1000 MG POLVERE PER SOLUZIONE INIETTABILE [Concomitant]
     Indication: PRODUCT USED FOR UNKNOWN INDICATION
     Dosage: 3 DF
  9. ADENURIC - 80 MG COMPRESSA RIVESTITA CON FILM [Concomitant]
     Indication: PRODUCT USED FOR UNKNOWN INDICATION
     Dosage: 80 MG
     Route: 048
  10. ROCALTROL - 0.50 MCG CAPSULE MOLLI [Concomitant]
     Indication: PRODUCT USED FOR UNKNOWN INDICATION
     Dosage: 1 DF
     Route: 048

REACTIONS (1)
  - Electrocardiogram QT prolonged [Recovered/Resolved]

NARRATIVE: CASE EVENT DATE: 20150619
